FAERS Safety Report 7121260-2 (Version None)
Quarter: 2010Q4

REPORT INFORMATION
  Report Type: 
  Country: None (occurrence: None)
  Receive Date: 20101124
  Receipt Date: 20101108
  Transmission Date: 20110411
  Serious: No
  Sender: FDA-Public Use
  Company Number: US-B.I. PHARMACEUTICALS,INC./RIDGEFIELD-2010-BP-12528BP

PATIENT
  Sex: Female

DRUGS (6)
  1. MICARDIS [Suspect]
  2. LORATADINE [Suspect]
  3. TOPROL-XL [Suspect]
  4. ISOSORBIDE DINITRATE [Suspect]
  5. NORVASC [Suspect]
  6. LYRICA [Suspect]

REACTIONS (2)
  - DIARRHOEA [None]
  - HEART RATE IRREGULAR [None]
